FAERS Safety Report 8046384-7 (Version None)
Quarter: 2012Q1

REPORT INFORMATION
  Report Type: 
  Country: None (occurrence: None)
  Receive Date: 20120113
  Receipt Date: 20120104
  Transmission Date: 20120608
  Serious: Yes (Hospitalization, Other)
  Sender: FDA-Public Use
  Company Number: US-ELI_LILLY_AND_COMPANY-US201105005180

PATIENT
  Sex: Male

DRUGS (16)
  1. FORTEO [Suspect]
     Dosage: 20 UG, QD
     Route: 065
  2. OSCAL D                            /00944201/ [Concomitant]
  3. ZOLOFT [Concomitant]
  4. PROPRANOLOL [Concomitant]
  5. FORTEO [Suspect]
     Dosage: 20 UG, QD
     Route: 065
  6. FORTEO [Suspect]
     Dosage: 20 UG, QD
     Dates: end: 20111201
  7. LOSARTAN POTASSIUM [Concomitant]
  8. FORTEO [Suspect]
     Indication: OSTEOPOROSIS
     Dosage: 20 UG, QD
     Route: 065
     Dates: start: 20110511
  9. ASPIRIN [Concomitant]
  10. FISH OIL [Concomitant]
  11. VYTORIN [Concomitant]
  12. OXYCODONE HCL [Concomitant]
  13. TAMSULOSIN HCL [Concomitant]
  14. PERCOCET [Concomitant]
  15. LUMIGAN [Concomitant]
  16. FORTEO [Suspect]
     Dosage: 20 UG, QD
     Route: 065

REACTIONS (14)
  - FAILURE TO THRIVE [None]
  - ABASIA [None]
  - GENERAL PHYSICAL CONDITION ABNORMAL [None]
  - MUSCULAR WEAKNESS [None]
  - BACK PAIN [None]
  - ORTHOSTATIC HYPOTENSION [None]
  - PAIN [None]
  - GENERAL PHYSICAL HEALTH DETERIORATION [None]
  - GAIT DISTURBANCE [None]
  - SPEECH DISORDER [None]
  - FALL [None]
  - DRUG DOSE OMISSION [None]
  - ASTHENIA [None]
  - MOVEMENT DISORDER [None]
